FAERS Safety Report 7049857-9 (Version None)
Quarter: 2010Q4

REPORT INFORMATION
  Report Type: 
  Country: None (occurrence: None)
  Receive Date: 20101018
  Receipt Date: 20101008
  Transmission Date: 20110411
  Serious: Yes (Hospitalization, Other)
  Sender: FDA-Public Use
  Company Number: US-ABBOTT-10P-163-0670092-00

PATIENT
  Age: 57 Year
  Sex: Male
  Weight: 87.5 kg

DRUGS (12)
  1. VICODIN [Suspect]
     Indication: PROPHYLAXIS
     Dosage: 5/500
     Dates: end: 20100709
  2. RADIATION [Suspect]
     Indication: PRODUCT USED FOR UNKNOWN INDICATION
     Dosage: QD 5 DAY X 3 WEEKS
  3. DOUBLE BLIND [Suspect]
     Indication: PRODUCT USED FOR UNKNOWN INDICATION
     Dosage: BN0006492
     Dates: start: 20100617, end: 20100708
  4. DOUBLE BLIND [Suspect]
     Dates: start: 20100806
  5. PEPCID [Concomitant]
     Indication: PRODUCT USED FOR UNKNOWN INDICATION
  6. SOTALOL [Concomitant]
     Indication: PRODUCT USED FOR UNKNOWN INDICATION
     Route: 048
  7. SIMVASTATIN [Concomitant]
     Indication: PRODUCT USED FOR UNKNOWN INDICATION
     Dosage: WITH SUPPER
     Route: 048
     Dates: start: 20100709
  8. FOLIC ACID [Concomitant]
     Indication: PRODUCT USED FOR UNKNOWN INDICATION
     Route: 048
  9. DIGOXIN [Concomitant]
     Indication: PRODUCT USED FOR UNKNOWN INDICATION
     Route: 048
  10. SYMBICORT [Concomitant]
     Indication: PRODUCT USED FOR UNKNOWN INDICATION
     Dates: end: 20100709
  11. DEXAMETHASONE [Concomitant]
     Indication: PRODUCT USED FOR UNKNOWN INDICATION
     Dates: end: 20100709
  12. KEPPRA [Concomitant]
     Indication: PRODUCT USED FOR UNKNOWN INDICATION

REACTIONS (4)
  - CONVULSION [None]
  - DEPRESSED LEVEL OF CONSCIOUSNESS [None]
  - HYPOXIA [None]
  - SOMNOLENCE [None]
